FAERS Safety Report 8612855-5 (Version None)
Quarter: 2012Q3

REPORT INFORMATION
  Report Type: 
  Country: None (occurrence: None)
  Receive Date: 20120822
  Receipt Date: 20120501
  Transmission Date: 20120928
  Serious: No
  Sender: FDA-Public Use
  Company Number: US-ASTRAZENECA-2011SE33965

PATIENT
  Age: 67 Year
  Sex: Female
  Weight: 18.1 kg

DRUGS (3)
  1. SYMBICORT [Suspect]
     Indication: CHRONIC OBSTRUCTIVE PULMONARY DISEASE
     Dosage: 160 MCG, BID
     Route: 055
     Dates: start: 20100101
  2. ADVIR [Concomitant]
  3. NEXIUM [Suspect]
     Route: 048

REACTIONS (5)
  - INTENTIONAL DRUG MISUSE [None]
  - BLOOD PRESSURE INCREASED [None]
  - BRONCHITIS [None]
  - DYSPNOEA [None]
  - MALAISE [None]
